FAERS Safety Report 23460605 (Version 2)
Quarter: 2024Q1

REPORT INFORMATION
  Report Type: Spontaneous
  Country: CZ (occurrence: CZ)
  Receive Date: 20240131
  Receipt Date: 20240208
  Transmission Date: 20240410
  Serious: Yes (Other)
  Sender: FDA-Public Use
  Company Number: CZ-CELLTRION HEALTHCARE HUNGARY KFT-2024CZ000690

PATIENT
  Age: 34 Year
  Sex: Male

DRUGS (7)
  1. SECUKINUMAB [Suspect]
     Active Substance: SECUKINUMAB
     Indication: Psoriasis
     Dosage: 300 MG
     Route: 065
     Dates: start: 20161108
  2. INFLIXIMAB [Suspect]
     Active Substance: INFLIXIMAB
     Indication: Psoriasis
     Dosage: 5 MG/KG AT 6TH WEEK
     Route: 065
  3. INFLIXIMAB [Suspect]
     Active Substance: INFLIXIMAB
     Dosage: 5 MG/KG, EVERY 8 WEEKS
     Route: 065
  4. INFLIXIMAB [Suspect]
     Active Substance: INFLIXIMAB
     Dosage: 5 MG/KG AT 2ND WEEK
     Route: 065
  5. INFLIXIMAB [Suspect]
     Active Substance: INFLIXIMAB
     Dosage: 5 MG/KG
     Route: 065
     Dates: start: 20160510
  6. TALTZ [Suspect]
     Active Substance: IXEKIZUMAB
     Indication: Psoriasis
     Dosage: 160 MG
     Route: 065
     Dates: start: 202111
  7. TALTZ [Suspect]
     Active Substance: IXEKIZUMAB
     Dosage: 80 MG, Q4W
     Route: 065

REACTIONS (1)
  - Ophthalmic herpes zoster [Unknown]

NARRATIVE: CASE EVENT DATE: 20180801
